FAERS Safety Report 6980007-0 (Version None)
Quarter: 2010Q3

REPORT INFORMATION
  Report Type: 
  Country: None (occurrence: None)
  Receive Date: 20100914
  Receipt Date: 20100903
  Transmission Date: 20110219
  Serious: Yes (Other)
  Sender: FDA-Public Use
  Company Number: US-PFIZER INC-2010096856

PATIENT
  Sex: Female

DRUGS (2)
  1. GEODON [Suspect]
     Dosage: 80 MG, 1X/DAY
  2. GEODON [Suspect]
     Dosage: 160 MG, 1X/DAY

REACTIONS (10)
  - CARDIAC DISORDER [None]
  - COMA [None]
  - DYSKINESIA [None]
  - EYE DISORDER [None]
  - INJURY [None]
  - NIGHTMARE [None]
  - SOMNOLENCE [None]
  - SYNCOPE [None]
  - TARDIVE DYSKINESIA [None]
  - WITHDRAWAL SYNDROME [None]
